FAERS Safety Report 12437603 (Version 1)
Quarter: 2016Q2

REPORT INFORMATION
  Report Type: Report from Study
  Country: IN (occurrence: IN)
  Receive Date: 20160606
  Receipt Date: 20160606
  Transmission Date: 20160815
  Serious: Yes (Death, Hospitalization)
  Sender: FDA-Public Use
  Company Number: IN-ROCHE-1763377

PATIENT
  Age: 49 Year
  Sex: Female
  Weight: 56 kg

DRUGS (5)
  1. TRASTUZUMAB [Suspect]
     Active Substance: TRASTUZUMAB
     Dosage: MAINTENANCE DOSE?7TH CYCLE AND LAST DOSE PRIOR TO SAE ON 20/MAY/2016 WAS 336 MG
     Route: 042
     Dates: start: 20160125
  2. PERTUZUMAB [Suspect]
     Active Substance: PERTUZUMAB
     Indication: HER-2 POSITIVE BREAST CANCER
     Dosage: LOADING DOSE
     Route: 042
     Dates: start: 20160104, end: 20160104
  3. TRASTUZUMAB [Suspect]
     Active Substance: TRASTUZUMAB
     Indication: HER-2 POSITIVE BREAST CANCER
     Dosage: LOADING DOSE
     Route: 042
     Dates: start: 20160104, end: 20160104
  4. PERTUZUMAB [Suspect]
     Active Substance: PERTUZUMAB
     Dosage: MAINTENANCE DOSE?7TH CYCLE AND LAST DOSE PRIOR TO SAE ON 20/MAY/2016 WAS 420 MG
     Route: 042
     Dates: start: 20160125
  5. DOCETAXEL. [Suspect]
     Active Substance: DOCETAXEL
     Indication: HER-2 POSITIVE BREAST CANCER
     Dosage: 7TH CYCLE AND LAST DOSE PRIOR TO SAE ON 29/APR/2016
     Route: 042
     Dates: start: 20160104

REACTIONS (1)
  - Shock [Fatal]

NARRATIVE: CASE EVENT DATE: 20160523
